FAERS Safety Report 4854508-5 (Version None)
Quarter: 2005Q4

REPORT INFORMATION
  Report Type: 
  Country: None (occurrence: None)
  Receive Date: 20051213
  Receipt Date: 20051206
  Transmission Date: 20060501
  Serious: Yes (Other)
  Sender: FDA-Public Use
  Company Number: 2005164007

PATIENT
  Age: 39 Year
  Sex: Female

DRUGS (2)
  1. NICOTINE [Suspect]
     Dosage: TRANSDERMAL
     Route: 062
  2. CLOZAPINE [Suspect]
     Indication: SCHIZOPHRENIA
     Dosage: 150 MG BID,
     Dates: start: 20051014

REACTIONS (1)
  - TACHYCARDIA [None]
